FAERS Safety Report 13540048 (Version 2)
Quarter: 2017Q2

REPORT INFORMATION
  Report Type: Spontaneous
  Country: US (occurrence: US)
  Receive Date: 20170512
  Receipt Date: 20170605
  Transmission Date: 20170830
  Serious: No
  Sender: FDA-Public Use
  Company Number: US-GLAXOSMITHKLINE-US2017GSK068781

PATIENT
  Sex: Male

DRUGS (1)
  1. FLOVENT DISKUS [Suspect]
     Active Substance: FLUTICASONE PROPIONATE
     Indication: DYSPNOEA
     Dosage: UNK
     Dates: start: 20170426, end: 20170504

REACTIONS (7)
  - Chest pain [Unknown]
  - Dyspnoea [Unknown]
  - Condition aggravated [Unknown]
  - Oral discomfort [Unknown]
  - Respiratory tract irritation [Unknown]
  - Cough [Unknown]
  - Productive cough [Unknown]
